FAERS Safety Report 5608201-1 (Version None)
Quarter: 2008Q1

REPORT INFORMATION
  Report Type: 
  Country: None (occurrence: None)
  Receive Date: 20080130
  Receipt Date: 20080118
  Transmission Date: 20080703
  Serious: Yes (Hospitalization, Other)
  Sender: FDA-Public Use
  Company Number: US-ROCHE-537868

PATIENT
  Age: 49 Year
  Sex: Female

DRUGS (2)
  1. PEG-INTERFERON A-2A (RO 25-8310) [Suspect]
     Route: 065
     Dates: start: 20070801
  2. RIBAVIRIN [Suspect]
     Route: 065
     Dates: start: 20070801

REACTIONS (2)
  - HAEMOPTYSIS [None]
  - WHITE BLOOD CELL COUNT DECREASED [None]
